FAERS Safety Report 7306208-X (Version None)
Quarter: 2011Q1

REPORT INFORMATION
  Report Type: 
  Country: None (occurrence: None)
  Receive Date: 20110222
  Receipt Date: 20110208
  Transmission Date: 20110831
  Serious: Yes (Other)
  Sender: FDA-Public Use
  Company Number: PHHY2011JP12550

PATIENT
  Age: 46 Year
  Sex: Male

DRUGS (2)
  1. TACROLIMUS [Suspect]
     Indication: MYASTHENIA GRAVIS
  2. PREDNISOLONE [Concomitant]
     Dosage: 20 MG/DAY

REACTIONS (2)
  - OSTEONECROSIS [None]
  - NEPHROLITHIASIS [None]
